FAERS Safety Report 5091211-3 (Version None)
Quarter: 2006Q3

REPORT INFORMATION
  Report Type: 
  Country: None (occurrence: None)
  Receive Date: 20060825
  Receipt Date: 20060825
  Transmission Date: 20061208
  Serious: Yes (Other)
  Sender: FDA-Public Use
  Company Number: None

PATIENT
  Sex: Male
  Weight: 70.3075 kg

DRUGS (2)
  1. SEROQUEL [Suspect]
     Indication: BIPOLAR DISORDER
     Dosage: 100 MG BID PO
     Route: 048
     Dates: start: 20010201, end: 20060430
  2. SEROQUEL [Suspect]
     Indication: BIPOLAR DISORDER
     Dosage: 150 MG BID PO
     Route: 048
     Dates: start: 20060501, end: 20060530

REACTIONS (3)
  - AMNESIA [None]
  - BALANCE DISORDER [None]
  - CONVULSION [None]
